FAERS Safety Report 4451707-1 (Version None)
Quarter: 2004Q3

REPORT INFORMATION
  Report Type: 
  Country: None (occurrence: None)
  Receive Date: 20040916
  Receipt Date: 20040902
  Transmission Date: 20050211
  Serious: Yes (Hospitalization)
  Sender: FDA-Public Use
  Company Number: PH-MERCK-0409PHL00001

PATIENT
  Age: 67 Year
  Sex: Female

DRUGS (1)
  1. FOSAMAX [Suspect]
     Indication: BACK PAIN
     Route: 048
     Dates: start: 20040801, end: 20040801

REACTIONS (2)
  - GASTRIC HAEMORRHAGE [None]
  - MEDICATION ERROR [None]
